FAERS Safety Report 19228226 (Version 2)
Quarter: 2021Q2

REPORT INFORMATION
  Report Type: Spontaneous
  Country: IT (occurrence: IT)
  Receive Date: 20210507
  Receipt Date: 20210519
  Transmission Date: 20210717
  Serious: Yes (Other)
  Sender: FDA-Public Use
  Company Number: IT-TEVA-2021-IT-1908181

PATIENT
  Age: 62 Year
  Sex: Female
  Weight: 63 kg

DRUGS (3)
  1. RIFABUTIN. [Concomitant]
     Active Substance: RIFABUTIN
     Dosage: 300 MG
     Route: 048
     Dates: start: 20200816, end: 20210412
  2. TOBRAMICINA TEVA 300 MG / 5 ML SOLUZIONE PER NEBULIZZATORE [Suspect]
     Active Substance: TOBRAMYCIN
     Indication: MYCOBACTERIAL INFECTION
     Route: 055
     Dates: start: 20210211, end: 20210412
  3. CLOFAZIMINE [Concomitant]
     Active Substance: CLOFAZIMINE
     Dosage: 100 MG
     Route: 048
     Dates: start: 20200816, end: 20210412

REACTIONS (2)
  - Auditory disorder [Not Recovered/Not Resolved]
  - Cough [Not Recovered/Not Resolved]

NARRATIVE: CASE EVENT DATE: 20210320
